FAERS Safety Report 6743567-0 (Version None)
Quarter: 2010Q2

REPORT INFORMATION
  Report Type: 
  Country: None (occurrence: None)
  Receive Date: 20100527
  Receipt Date: 20100514
  Transmission Date: 20101027
  Serious: Yes (Hospitalization, Other)
  Sender: FDA-Public Use
  Company Number: US-ROCHE-704652

PATIENT
  Sex: Female
  Weight: 99.8 kg

DRUGS (1)
  1. HERCEPTIN [Suspect]
     Indication: BREAST CANCER
     Dosage: DATE REPORTED: PATIENT RECEIVED DRUG ON 06 DECEMBER 2008 OR 08 DECEMBER 2008.DOSE FORM: INFUSION
     Route: 042

REACTIONS (4)
  - COMA [None]
  - LUNG DISORDER [None]
  - PYREXIA [None]
  - RESPIRATORY ARREST [None]
